FAERS Safety Report 9845479 (Version 3)
Quarter: 2014Q2

REPORT INFORMATION
  Report Type: Report from Study
  Country: JP (occurrence: JP)
  Receive Date: 20140127
  Receipt Date: 20140428
  Transmission Date: 20141212
  Serious: Yes (Life-Threatening, Hospitalization)
  Sender: FDA-Public Use
  Company Number: JP-SA-2014SA009480

PATIENT
  Age: 21 Year
  Sex: Female
  Weight: 42.7 kg

DRUGS (21)
  1. THYMOGLOBULINE [Suspect]
     Indication: BONE MARROW CONDITIONING REGIMEN
     Route: 042
     Dates: start: 20110226, end: 20110227
  2. PROGRAF [Suspect]
     Indication: PROPHYLAXIS AGAINST GRAFT VERSUS HOST DISEASE
     Route: 065
     Dates: start: 20110227, end: 20110317
  3. GRAN [Concomitant]
     Indication: PROPHYLAXIS
     Dosage: REPORTED AS SYRINGE
     Route: 065
     Dates: start: 20110305, end: 20110311
  4. PREDONINE [Concomitant]
     Indication: PROPHYLAXIS AGAINST GRAFT VERSUS HOST DISEASE
     Route: 065
     Dates: start: 20110301, end: 20110314
  5. SOL-MELCORT [Concomitant]
     Indication: PROPHYLAXIS
     Route: 065
     Dates: start: 20110226, end: 20110228
  6. POLARAMINE [Concomitant]
     Indication: ALLERGY PROPHYLAXIS
     Route: 065
     Dates: start: 20110228, end: 20110228
  7. ALL OTHER THERAPEUTIC PRODUCTS [Concomitant]
     Indication: PROPHYLAXIS
     Route: 042
     Dates: start: 20110228, end: 20110228
  8. VICCLOX [Concomitant]
     Indication: PROPHYLAXIS
     Dosage: FORMULATION: IV INFUSION
     Route: 042
     Dates: start: 20110222, end: 20110403
  9. MAGNESIUM SULFATE [Concomitant]
     Indication: HYPOMAGNESAEMIA
     Route: 065
     Dates: start: 20110223, end: 20110318
  10. HANP [Concomitant]
     Indication: CARDIOVASCULAR EVENT PROPHYLAXIS
     Route: 065
     Dates: start: 20110304, end: 20110306
  11. OMEPRAL [Concomitant]
     Indication: PROPHYLAXIS AGAINST GASTROINTESTINAL ULCER
     Route: 065
     Dates: start: 20110305, end: 20110315
  12. OMEPRAL [Concomitant]
     Indication: PROPHYLAXIS AGAINST GASTROINTESTINAL ULCER
     Route: 065
     Dates: start: 20110222, end: 20110305
  13. FUNGUARD [Concomitant]
     Indication: ANTIFUNGAL PROPHYLAXIS
     Dosage: FOR INFUSION
     Route: 065
     Dates: start: 20110307, end: 20110403
  14. PRIMPERAN [Concomitant]
     Indication: PROPHYLAXIS OF NAUSEA AND VOMITING
     Route: 065
     Dates: start: 20110308, end: 20110309
  15. ALLELOCK [Concomitant]
     Indication: GRAFT VERSUS HOST DISEASE IN SKIN
     Route: 065
     Dates: start: 20110222
  16. DIFLUCAN [Concomitant]
     Indication: ANTIFUNGAL PROPHYLAXIS
     Route: 065
     Dates: start: 20110222, end: 20110307
  17. MAGMITT [Concomitant]
     Indication: CONSTIPATION
     Route: 065
     Dates: start: 20110222
  18. SILECE [Concomitant]
     Indication: INSOMNIA
     Route: 065
     Dates: start: 20110222
  19. BROTIZOLAM [Concomitant]
     Indication: INSOMNIA
     Route: 065
     Dates: start: 20110222
  20. CRAVIT [Concomitant]
     Indication: PROPHYLAXIS
     Route: 065
     Dates: start: 20110222, end: 20110310
  21. URSO [Concomitant]
     Indication: CHRONIC GRAFT VERSUS HOST DISEASE IN LIVER
     Route: 065
     Dates: start: 20110322

REACTIONS (3)
  - Posterior reversible encephalopathy syndrome [Recovered/Resolved]
  - Febrile neutropenia [Recovered/Resolved]
  - Herpes simplex meningoencephalitis [Recovered/Resolved]
